FAERS Safety Report 16351879 (Version 1)
Quarter: 2019Q2

REPORT INFORMATION
  Report Type: Spontaneous
  Country: US (occurrence: US)
  Receive Date: 20190524
  Receipt Date: 20190524
  Transmission Date: 20190711
  Serious: No
  Sender: FDA-Public Use
  Company Number: US-NOVEN PHARMACEUTICALS, INC.-US2018000502

PATIENT

DRUGS (2)
  1. DAYTRANA [Suspect]
     Active Substance: METHYLPHENIDATE
     Indication: ATTENTION DEFICIT/HYPERACTIVITY DISORDER
     Dosage: UNK, UNKNOWN
     Route: 062
  2. DAYTRANA [Suspect]
     Active Substance: METHYLPHENIDATE
     Dosage: 30 MG, QD
     Route: 062
     Dates: start: 2018

REACTIONS (8)
  - Product administered at inappropriate site [Unknown]
  - Product adhesion issue [Recovered/Resolved]
  - Insomnia [Recovering/Resolving]
  - Application site erythema [Recovered/Resolved]
  - Application site pain [Unknown]
  - Irritability [Unknown]
  - Product dose omission [Recovered/Resolved]
  - Product quality issue [Unknown]

NARRATIVE: CASE EVENT DATE: 2018
